FAERS Safety Report 6875243-8 (Version None)
Quarter: 2010Q3

REPORT INFORMATION
  Report Type: 
  Country: None (occurrence: None)
  Receive Date: 20100727
  Receipt Date: 20100713
  Transmission Date: 20110219
  Serious: Yes (Other)
  Sender: FDA-Public Use
  Company Number: US-JNJFOC-20100704496

PATIENT
  Sex: Male

DRUGS (4)
  1. REMICADE [Suspect]
     Indication: CROHN'S DISEASE
     Route: 042
  2. REMICADE [Suspect]
     Dosage: 2 INFUSIONS TOTAL
     Route: 042
  3. VITAMIN B-12 [Concomitant]
     Indication: ROUTINE HEALTH MAINTENANCE
  4. LORTAB [Concomitant]
     Indication: PAIN

REACTIONS (2)
  - URINARY TRACT INFECTION [None]
  - VESICAL FISTULA [None]
